FAERS Safety Report 4396743-9 (Version None)
Quarter: 2004Q3

REPORT INFORMATION
  Report Type: 
  Country: None (occurrence: None)
  Receive Date: 20040708
  Receipt Date: 20040625
  Transmission Date: 20050211
  Serious: Yes (Hospitalization)
  Sender: FDA-Public Use
  Company Number: 2004220836FR

PATIENT
  Age: 51 Year
  Sex: Female
  Weight: 75 kg

DRUGS (5)
  1. PHARMORUBICIN RD (EPIRUBICIN HYDROCHLORIDE)POWDER, STERILE [Suspect]
     Indication: BREAST CANCER FEMALE
     Dosage: 183 MG, CYCLIC, IV
     Route: 042
     Dates: start: 20030723, end: 20031105
  2. FLUOROURACIL [Suspect]
     Indication: BREAST CANCER FEMALE
     Dosage: 915 MG, CYCLIC IV
     Route: 042
     Dates: start: 20030723, end: 20031125
  3. CYCLOPHOSPHAMIDE [Suspect]
     Indication: BREAST CANCER FEMALE
     Dosage: 915 MG, CYCLIC, IV
     Route: 042
     Dates: start: 20030723, end: 20031125
  4. ARIMIDEX [Concomitant]
  5. DAFLON (DIOSMIN) [Concomitant]

REACTIONS (3)
  - CARDIOMYOPATHY [None]
  - CONVULSION [None]
  - EJECTION FRACTION DECREASED [None]
